FAERS Safety Report 14055225 (Version 1)
Quarter: 2017Q4

REPORT INFORMATION
  Report Type: Spontaneous
  Country: RU (occurrence: RU)
  Receive Date: 20171006
  Receipt Date: 20171006
  Transmission Date: 20180321
  Serious: Yes (Hospitalization)
  Sender: FDA-Public Use
  Company Number: RU-ASTRAZENECA-2017SF00226

PATIENT
  Age: 57 Year
  Sex: Male
  Weight: 97 kg

DRUGS (7)
  1. CARDIOMAGNYL [Concomitant]
     Active Substance: ASPIRIN\MAGNESIUM HYDROXIDE
  2. CARDIKET [Concomitant]
     Active Substance: ISOSORBIDE DINITRATE
  3. EGILOK [Concomitant]
     Active Substance: METOPROLOL TARTRATE
  4. ATORVASTATIN [Concomitant]
     Active Substance: ATORVASTATIN
  5. BRILINTA [Suspect]
     Active Substance: TICAGRELOR
     Indication: MYOCARDIAL INFARCTION
     Route: 048
     Dates: start: 20170323
  6. NOLPAZA [Concomitant]
     Active Substance: PANTOPRAZOLE SODIUM
  7. LISINOPRIL. [Concomitant]
     Active Substance: LISINOPRIL

REACTIONS (1)
  - Angina pectoris [Not Recovered/Not Resolved]

NARRATIVE: CASE EVENT DATE: 201705
